FAERS Safety Report 19595142 (Version 1)
Quarter: 2021Q3

REPORT INFORMATION
  Report Type: Spontaneous
  Country: US (occurrence: US)
  Receive Date: 20210722
  Receipt Date: 20210722
  Transmission Date: 20211014
  Serious: No
  Sender: FDA-Public Use
  Company Number: US-PFIZER INC-2021469700

PATIENT
  Age: 40 Year
  Sex: Female
  Weight: 97.51 kg

DRUGS (19)
  1. ZYRTEC [Concomitant]
     Active Substance: CETIRIZINE HYDROCHLORIDE
     Dosage: UNK
  2. FLUVOXAMINE [Concomitant]
     Active Substance: FLUVOXAMINE
     Dosage: UNK
  3. GABAPENTIN. [Concomitant]
     Active Substance: GABAPENTIN
     Dosage: UNK
  4. LEVOTHYROXINE. [Concomitant]
     Active Substance: LEVOTHYROXINE
     Dosage: UNK
  5. VITAMIN B COMPLEX [Concomitant]
     Active Substance: CYANOCOBALAMIN\DEXPANTHENOL\NIACINAMIDE\PYRIDOXINE HYDROCHLORIDE\RIBOFLAVIN 5^-PHOSPHATE SODIUM\THIAMINE HYDROCHLORIDE\VITAMIN B COMPLEX
     Dosage: UNK
  6. FLONASE ALLERGY RELIEF [Concomitant]
     Active Substance: FLUTICASONE PROPIONATE
     Dosage: UNK
  7. IBRANCE [Suspect]
     Active Substance: PALBOCICLIB
     Indication: BREAST CANCER FEMALE
     Dosage: 125 MG, CYCLIC (DAILY, 21 DAYS, 7 DAYS OFF)
     Route: 048
     Dates: start: 201804
  8. AMITRIPTYLINE [Concomitant]
     Active Substance: AMITRIPTYLINE
     Dosage: UNK
  9. ATORVASTATIN [Concomitant]
     Active Substance: ATORVASTATIN
     Dosage: UNK
  10. BOOSTRIX [Concomitant]
     Active Substance: TETANUS TOXOID, REDUCED DIPHTHERIA TOXOID AND ACELLULAR PERTUSSIS VACCINE, ADSORBED ANTIGENS
     Dosage: UNK
  11. VYVANSE [Concomitant]
     Active Substance: LISDEXAMFETAMINE DIMESYLATE
     Dosage: UNK
  12. CLONAZEPAM. [Concomitant]
     Active Substance: CLONAZEPAM
     Dosage: UNK
  13. METHYLPHENIDATE. [Concomitant]
     Active Substance: METHYLPHENIDATE
     Dosage: UNK
  14. PNEUMOVAX 23 [Concomitant]
     Active Substance: PNEUMOCOCCAL VACCINE, POLYVALENT 23
     Dosage: UNK
  15. BYSTOLIC [Concomitant]
     Active Substance: NEBIVOLOL HYDROCHLORIDE
     Dosage: UNK
  16. XARELTO [Concomitant]
     Active Substance: RIVAROXABAN
     Dosage: UNK
  17. TOZINAMERAN. [Concomitant]
     Active Substance: TOZINAMERAN
     Dosage: UNK
  18. BUSPIRONE [Concomitant]
     Active Substance: BUSPIRONE HYDROCHLORIDE
     Dosage: UNK
  19. LETROZOLE. [Concomitant]
     Active Substance: LETROZOLE
     Dosage: UNK

REACTIONS (1)
  - Neoplasm progression [Unknown]
